FAERS Safety Report 7372516-X (Version None)
Quarter: 2011Q1

REPORT INFORMATION
  Report Type: 
  Country: None (occurrence: None)
  Receive Date: 20110324
  Receipt Date: 20110311
  Transmission Date: 20110831
  Serious: Yes (Hospitalization, Other)
  Sender: FDA-Public Use
  Company Number: FR-CELGENEUS-056-21880-11031541

PATIENT
  Sex: Female
  Weight: 55 kg

DRUGS (2)
  1. DEXAMETHASONE [Suspect]
     Indication: MULTIPLE MYELOMA
     Dosage: 80 MILLIGRAM
     Route: 065
     Dates: start: 20110124, end: 20110214
  2. REVLIMID [Suspect]
     Indication: MULTIPLE MYELOMA
     Dosage: 25 MILLIGRAM
     Route: 048
     Dates: start: 20110124, end: 20110214

REACTIONS (6)
  - HAEMOPHILUS INFECTION [None]
  - LUNG ADENOCARCINOMA [None]
  - HEMIPLEGIA [None]
  - CHEST PAIN [None]
  - APHASIA [None]
  - DYSPNOEA [None]
